FAERS Safety Report 8231118-3 (Version None)
Quarter: 2012Q1

REPORT INFORMATION
  Report Type: 
  Country: None (occurrence: None)
  Receive Date: 20120322
  Receipt Date: 20120322
  Transmission Date: 20120608
  Serious: No
  Sender: FDA-Public Use
  Company Number: None

PATIENT
  Age: 50 Year
  Sex: Female
  Weight: 63.502 kg

DRUGS (1)
  1. VITAMIN D [Suspect]
     Indication: VITAMIN D DECREASED
     Route: 048
     Dates: start: 20120306, end: 20120306

REACTIONS (4)
  - NAUSEA [None]
  - DIZZINESS [None]
  - EYE HAEMORRHAGE [None]
  - TINNITUS [None]
